FAERS Safety Report 18693262 (Version 6)
Quarter: 2021Q3

REPORT INFORMATION
  Report Type: Report from Study
  Country: PL (occurrence: PL)
  Receive Date: 20210104
  Receipt Date: 20210805
  Transmission Date: 20211014
  Serious: Yes (Hospitalization)
  Sender: FDA-Public Use
  Company Number: PL-ROCHE-2738473

PATIENT
  Age: 50 Year
  Sex: Female
  Weight: 61 kg

DRUGS (25)
  1. MYDOCALM [Concomitant]
     Route: 048
     Dates: start: 20181215
  2. METHYLPREDNISOLONE. [Concomitant]
     Active Substance: METHYLPREDNISOLONE
     Route: 042
     Dates: start: 20180920, end: 20180920
  3. METHYLPREDNISOLONE. [Concomitant]
     Active Substance: METHYLPREDNISOLONE
     Route: 042
     Dates: start: 20190305, end: 20190305
  4. ALERTEC [CETIRIZINE HYDROCHLORIDE] [Concomitant]
     Route: 048
     Dates: start: 20180920, end: 20180920
  5. ALERTEC [CETIRIZINE HYDROCHLORIDE] [Concomitant]
     Route: 048
     Dates: start: 20190305, end: 20190305
  6. ALERTEC [CETIRIZINE HYDROCHLORIDE] [Concomitant]
     Route: 048
     Dates: start: 20200210, end: 20200210
  7. LEVOXA [Concomitant]
     Active Substance: LEVOFLOXACIN
     Route: 048
     Dates: start: 20201116, end: 20201117
  8. CLEXANE [Concomitant]
     Active Substance: ENOXAPARIN SODIUM
     Indication: PROPHYLAXIS
     Route: 058
     Dates: start: 20201124, end: 20201207
  9. METHYLPREDNISOLONE. [Concomitant]
     Active Substance: METHYLPREDNISOLONE
     Route: 042
     Dates: start: 20210217, end: 20210217
  10. ALERTEC [CETIRIZINE HYDROCHLORIDE] [Concomitant]
     Route: 048
     Dates: start: 20180906, end: 20180906
  11. AZITROX [Concomitant]
     Active Substance: AZITHROMYCIN
     Route: 048
     Dates: start: 202011, end: 202011
  12. OCRELIZUMAB. [Suspect]
     Active Substance: OCRELIZUMAB
     Indication: PROGRESSIVE MULTIPLE SCLEROSIS
     Dosage: SUBSEQUENT DOSE DATES: 20/SEP/2018, 05/MAR/2019, 20/AUG/2019, 10/FEB/2020. DATE OF MOST RECENT DOSE
     Route: 042
     Dates: start: 20180906
  13. METHYLPREDNISOLONE. [Concomitant]
     Active Substance: METHYLPREDNISOLONE
     Route: 042
     Dates: start: 20190820, end: 20190820
  14. ASERTIN [Concomitant]
     Active Substance: SERTRALINE HYDROCHLORIDE
     Indication: DEPRESSED MOOD
     Route: 048
     Dates: start: 201301
  15. VITAMIN D3 [Concomitant]
     Active Substance: CHOLECALCIFEROL
     Indication: PROPHYLAXIS
     Dosage: 2000 OTHER (J.M)
     Route: 048
  16. SEDAM (POLAND) [Concomitant]
     Indication: PROPHYLAXIS
     Route: 048
     Dates: start: 201911
  17. METHYLPREDNISOLONE. [Concomitant]
     Active Substance: METHYLPREDNISOLONE
     Route: 042
     Dates: start: 20180906, end: 20180906
  18. MIRENA [Concomitant]
     Active Substance: LEVONORGESTREL
     Indication: CONTRACEPTION
     Dosage: INTRA UTERINE DEVICE (IUD)
     Dates: start: 2015
  19. CINGAL [Concomitant]
     Indication: ARTHRALGIA
     Route: 014
     Dates: start: 20191107, end: 20191107
  20. ALERTEC [CETIRIZINE HYDROCHLORIDE] [Concomitant]
     Route: 048
     Dates: start: 20200630, end: 20200630
  21. ALERTEC [CETIRIZINE HYDROCHLORIDE] [Concomitant]
     Route: 048
     Dates: start: 20210217, end: 20210217
  22. BACLOFEN. [Concomitant]
     Active Substance: BACLOFEN
     Route: 048
     Dates: start: 201712
  23. METHYLPREDNISOLONE. [Concomitant]
     Active Substance: METHYLPREDNISOLONE
     Route: 042
     Dates: start: 20200210, end: 20200210
  24. METHYLPREDNISOLONE. [Concomitant]
     Active Substance: METHYLPREDNISOLONE
     Route: 042
     Dates: start: 20200630, end: 20200630
  25. ALERTEC [CETIRIZINE HYDROCHLORIDE] [Concomitant]
     Route: 048
     Dates: start: 20190820, end: 20190820

REACTIONS (1)
  - Pneumonia [Recovered/Resolved]

NARRATIVE: CASE EVENT DATE: 20201118
